FAERS Safety Report 21112850 (Version 2)
Quarter: 2022Q4

REPORT INFORMATION
  Report Type: Spontaneous
  Country: CN (occurrence: CN)
  Receive Date: 20220721
  Receipt Date: 20221205
  Transmission Date: 20230113
  Serious: Yes (Other)
  Sender: FDA-Public Use
  Company Number: CN-PFIZER INC-PV202200026108

PATIENT
  Age: 73 Year
  Sex: Female
  Weight: 70 kg

DRUGS (2)
  1. ZYVOX [Suspect]
     Active Substance: LINEZOLID
     Indication: Abdominal infection
     Dosage: 600 MG, 2X/DAY
     Route: 048
     Dates: start: 20220530, end: 20220718
  2. MEROPENEM [Concomitant]
     Active Substance: MEROPENEM
     Indication: Abdominal infection
     Dosage: 1 G, 2X/DAY
     Route: 041
     Dates: start: 20220525, end: 20220718

REACTIONS (1)
  - Blood lactic acid increased [Unknown]

NARRATIVE: CASE EVENT DATE: 20220531
